FAERS Safety Report 5583241-X (Version None)
Quarter: 2008Q1

REPORT INFORMATION
  Report Type: 
  Country: None (occurrence: None)
  Receive Date: 20080107
  Receipt Date: 20080104
  Transmission Date: 20080703
  Serious: Yes (Hospitalization, Other)
  Sender: FDA-Public Use
  Company Number: US-ASTRAZENECA-2008UW00199

PATIENT
  Age: 56 Year
  Sex: Female
  Weight: 63.6 kg

DRUGS (3)
  1. METOPROLOL [Suspect]
     Indication: HYPERTENSION
     Route: 048
  2. DEPO-MEDROL [Suspect]
     Indication: PAIN IN EXTREMITY
     Route: 008
     Dates: start: 20060107, end: 20060107
  3. CORTICOSTEROIDS [Suspect]
     Route: 048
     Dates: start: 20060101, end: 20060101

REACTIONS (9)
  - BLOOD CHOLESTEROL INCREASED [None]
  - BLOOD PRESSURE FLUCTUATION [None]
  - BLOOD URINE PRESENT [None]
  - GAIT DISTURBANCE [None]
  - HOMICIDAL IDEATION [None]
  - HYPERTENSION [None]
  - MOOD ALTERED [None]
  - PAIN IN EXTREMITY [None]
  - WEIGHT INCREASED [None]
